FAERS Safety Report 9526166 (Version 2)
Quarter: 2013Q4

REPORT INFORMATION
  Report Type: Spontaneous
  Country: FR (occurrence: FR)
  Receive Date: 20130916
  Receipt Date: 20131029
  Transmission Date: 20140711
  Serious: Yes (Hospitalization, Other)
  Sender: FDA-Public Use
  Company Number: FR-JNJFOC-20130904315

PATIENT
  Age: 63 Year
  Sex: Male

DRUGS (17)
  1. REMICADE [Suspect]
     Indication: RHEUMATOID ARTHRITIS
     Route: 042
     Dates: start: 20130801
  2. REMICADE [Suspect]
     Indication: RHEUMATOID ARTHRITIS
     Dosage: 350MG/INFUSION
     Route: 042
     Dates: start: 20130829
  3. REMICADE [Suspect]
     Indication: RHEUMATOID ARTHRITIS
     Route: 042
     Dates: start: 20130716
  4. REMICADE [Suspect]
     Indication: RHEUMATOID ARTHRITIS
     Route: 042
     Dates: start: 20120912
  5. REMICADE [Suspect]
     Indication: RHEUMATOID ARTHRITIS
     Route: 042
     Dates: start: 20120807
  6. REMICADE [Suspect]
     Indication: RHEUMATOID ARTHRITIS
     Route: 042
     Dates: start: 20120713
  7. REMICADE [Suspect]
     Indication: RHEUMATOID ARTHRITIS
     Route: 042
     Dates: start: 20120629
  8. REMICADE [Suspect]
     Indication: RHEUMATOID ARTHRITIS
     Route: 042
     Dates: start: 20121019, end: 201306
  9. ZOLPIDEM [Concomitant]
     Route: 065
  10. DEXAMBUTOL [Concomitant]
     Indication: TUBERCULOSIS
     Route: 065
  11. RIFAMPICINE [Concomitant]
     Route: 065
  12. ESOMEPRAZOLE [Concomitant]
     Route: 065
  13. PREVISCAN [Concomitant]
     Route: 065
  14. OXYCONTIN [Concomitant]
     Route: 065
  15. PREDNISOLONE [Concomitant]
     Route: 065
  16. PARACETAMOL [Concomitant]
     Route: 065
  17. FORLAX [Concomitant]
     Route: 065

REACTIONS (8)
  - Tuberculosis [Unknown]
  - Urticaria [Recovered/Resolved]
  - Cough [Recovered/Resolved]
  - Infusion related reaction [Recovered/Resolved]
  - Synovitis [Unknown]
  - Drug ineffective [Unknown]
  - Erythema [Recovered/Resolved]
  - Pruritus [Recovered/Resolved]
